FAERS Safety Report 16328116 (Version 1)
Quarter: 2019Q2

REPORT INFORMATION
  Report Type: Spontaneous
  Country: DK (occurrence: DK)
  Receive Date: 20190518
  Receipt Date: 20190518
  Transmission Date: 20190711
  Serious: Yes (Life-Threatening, Hospitalization, Other)
  Sender: FDA-Public Use
  Company Number: DK-AUROBINDO-AUR-APL-2019-025980

PATIENT

DRUGS (1)
  1. METFORMIN [Suspect]
     Active Substance: METFORMIN HYDROCHLORIDE
     Indication: PRODUCT USED FOR UNKNOWN INDICATION
     Dosage: UNK
     Route: 065

REACTIONS (6)
  - Lactic acidosis [Recovering/Resolving]
  - Acute kidney injury [Recovered/Resolved]
  - Suicide attempt [Recovered/Resolved]
  - Overdose [Recovering/Resolving]
  - Respiratory failure [Recovering/Resolving]
  - Circulatory collapse [Recovering/Resolving]
